FAERS Safety Report 6747832-2 (Version None)
Quarter: 2010Q2

REPORT INFORMATION
  Report Type: 
  Country: None (occurrence: None)
  Receive Date: 20100528
  Receipt Date: 20100521
  Transmission Date: 20101027
  Serious: Yes (Hospitalization)
  Sender: FDA-Public Use
  Company Number: US-ABBOTT-07P-163-0355906-00

PATIENT
  Sex: Male

DRUGS (6)
  1. DEPAKENE [Suspect]
     Indication: EPILEPSY
     Route: 065
     Dates: start: 20010523, end: 20061213
  2. DEPAKENE [Suspect]
     Dates: start: 20061214
  3. CLOBAZAM [Concomitant]
     Indication: LENNOX-GASTAUT SYNDROME
     Route: 048
     Dates: start: 20060718, end: 20061213
  4. CLOBAZAM [Concomitant]
     Route: 048
     Dates: start: 20061214, end: 20061214
  5. CLOBAZAM [Concomitant]
     Route: 048
     Dates: start: 20061215
  6. TOPAMAX [Concomitant]
     Indication: EPILEPSY
     Route: 065
     Dates: start: 20010101

REACTIONS (5)
  - ANAEMIA MACROCYTIC [None]
  - DRUG LEVEL INCREASED [None]
  - NEUTROPHIL PELGER-HUET ANOMALY PRESENT [None]
  - PNEUMONIA [None]
  - THROMBOCYTOPENIA [None]
